FAERS Safety Report 7750700-0 (Version None)
Quarter: 2011Q3

REPORT INFORMATION
  Report Type: 
  Country: None (occurrence: None)
  Receive Date: 20110914
  Receipt Date: 20110906
  Transmission Date: 20111222
  Serious: Yes (Disabling, Other)
  Sender: FDA-Public Use
  Company Number: US-JNJFOC-20110711361

PATIENT
  Sex: Female
  Weight: 92.08 kg

DRUGS (1)
  1. REMICADE [Suspect]
     Indication: PRODUCT USED FOR UNKNOWN INDICATION
     Route: 042
     Dates: end: 20101118

REACTIONS (3)
  - LEG AMPUTATION [None]
  - POST PROCEDURAL INFECTION [None]
  - KNEE ARTHROPLASTY [None]
